FAERS Safety Report 4275721-4 (Version None)
Quarter: 2004Q1

REPORT INFORMATION
  Report Type: 
  Country: None (occurrence: None)
  Receive Date: 20040121
  Receipt Date: 20040113
  Transmission Date: 20041129
  Serious: Yes (Other)
  Sender: FDA-Public Use
  Company Number: PL-GLAXOSMITHKLINE-B0319695A

PATIENT
  Age: 29 Year
  Sex: Female

DRUGS (2)
  1. LAMOTRIGINE [Suspect]
     Indication: EPILEPSY
     Dosage: 25MG TWICE PER DAY
     Route: 048
     Dates: start: 20031022, end: 20031115
  2. VALPROATE SODIUM [Concomitant]
     Indication: EPILEPSY
     Dosage: 800MG TWICE PER DAY
     Route: 048
     Dates: start: 20010713

REACTIONS (3)
  - ANAPHYLACTIC REACTION [None]
  - FACE OEDEMA [None]
  - RASH GENERALISED [None]
